FAERS Safety Report 7511461-3 (Version None)
Quarter: 2011Q2

REPORT INFORMATION
  Report Type: 
  Country: None (occurrence: None)
  Receive Date: 20110531
  Receipt Date: 20110516
  Transmission Date: 20111010
  Serious: Yes (Other)
  Sender: FDA-Public Use
  Company Number: CA-JNJFOC-20110507818

PATIENT
  Sex: Female
  Weight: 54.6 kg

DRUGS (1)
  1. REMICADE [Suspect]
     Indication: CROHN'S DISEASE
     Route: 042
     Dates: start: 20081223

REACTIONS (2)
  - UTERINE DILATION AND CURETTAGE [None]
  - INFECTION [None]
